FAERS Safety Report 10053567 (Version 1)
Quarter: 2014Q2

REPORT INFORMATION
  Report Type: Spontaneous
  Country: US (occurrence: US)
  Receive Date: 20140402
  Receipt Date: 20140402
  Transmission Date: 20141212
  Serious: No
  Sender: FDA-Public Use
  Company Number: US-PFIZER INC-2014090270

PATIENT
  Age: 60 Year
  Sex: Male

DRUGS (1)
  1. DEPO-TESTOSTERONE [Suspect]
     Indication: ERECTILE DYSFUNCTION
     Dosage: UNK

REACTIONS (7)
  - Sluggishness [Unknown]
  - Fatigue [Unknown]
  - Activities of daily living impaired [Unknown]
  - Feeling cold [Unknown]
  - Malaise [Unknown]
  - Drug ineffective [Unknown]
  - Intentional product misuse [Unknown]
